FAERS Safety Report 6840807-4 (Version None)
Quarter: 2010Q3

REPORT INFORMATION
  Report Type: 
  Country: None (occurrence: None)
  Receive Date: 20100714
  Receipt Date: 20100628
  Transmission Date: 20110219
  Serious: Yes (Hospitalization, Other)
  Sender: FDA-Public Use
  Company Number: PHEH2006US08864

PATIENT
  Sex: Male

DRUGS (48)
  1. ZOMETA [Suspect]
     Dosage: UNK
     Dates: start: 20030101
  2. VINCRISTINE [Concomitant]
     Dosage: UNK
     Dates: start: 20030101
  3. ADRIAMYCIN PFS [Concomitant]
     Dosage: UNK
     Dates: start: 20030101
  4. DEXAMETHASONE ^KRKA^ [Concomitant]
     Dosage: UNK
     Dates: start: 20030101
  5. COUMADIN [Concomitant]
  6. THALIDOMIDE [Concomitant]
     Dosage: UNK
  7. NEURONTIN [Concomitant]
  8. VIOXX [Concomitant]
  9. HYDROCODONE [Concomitant]
  10. PROTONIX [Concomitant]
  11. GEMFIBROZIL [Concomitant]
  12. AVELOX [Concomitant]
  13. IBUPROFEN [Concomitant]
     Dosage: 800 MG, TID
  14. CHLORTHALIDONE [Concomitant]
     Dosage: 25 MG QD
  15. PROCRIT                            /00909301/ [Concomitant]
  16. ASPIRIN [Concomitant]
  17. MAGNESIUM [Concomitant]
  18. LOPRESSOR [Concomitant]
  19. NITROGLYCERIN [Concomitant]
  20. SIMVASTATIN [Concomitant]
  21. METFORMIN HCL [Concomitant]
  22. GLYBURIDE [Concomitant]
  23. HYDROCHLOROTHIAZIDE [Concomitant]
  24. LISINOPRIL [Concomitant]
  25. CYANOCOBALAMIN [Concomitant]
  26. DIVALPROEX SODIUM [Concomitant]
  27. ACETAMINOPHEN AND HYDROCODONE BITARTRATE [Concomitant]
  28. LEVOTHYROXINE SODIUM [Concomitant]
  29. CALCIUM CARBONATE [Concomitant]
  30. MULTI-VITAMINS [Concomitant]
  31. PLAVIX [Concomitant]
  32. ZOCOR [Concomitant]
  33. DOCUSATE [Concomitant]
  34. REGULAR INSULIN [Concomitant]
  35. METOCLOPRAMIDE [Concomitant]
  36. OMEPRAZOLE [Concomitant]
  37. DAPSONE [Concomitant]
  38. OXYCODONE HCL [Concomitant]
  39. MORPHINE SULFATE [Concomitant]
  40. REVLIMID [Concomitant]
  41. CLOPIDOGREL BISULFATE [Concomitant]
  42. VALPROIC ACID [Concomitant]
  43. CHEMOTHERAPEUTICS NOS [Concomitant]
  44. PERCOCET [Concomitant]
  45. LORTAB [Concomitant]
  46. VICODIN [Concomitant]
  47. ALBUTEROL [Concomitant]
  48. GUAIFENESIN [Concomitant]

REACTIONS (69)
  - ABSCESS [None]
  - ACTINOMYCOSIS [None]
  - AMNESIA [None]
  - AMYLOIDOSIS [None]
  - ANAEMIA [None]
  - ANXIETY [None]
  - ARTHRALGIA [None]
  - ASPARTATE AMINOTRANSFERASE INCREASED [None]
  - ATRIAL FIBRILLATION [None]
  - AUTONOMIC NERVOUS SYSTEM IMBALANCE [None]
  - BALANCE DISORDER [None]
  - BONE OPERATION [None]
  - CATHETERISATION CARDIAC [None]
  - CENTRAL VENOUS CATHETER REMOVAL [None]
  - CHEST DISCOMFORT [None]
  - CONTUSION [None]
  - CONVULSION [None]
  - DEBRIDEMENT [None]
  - DEEP VEIN THROMBOSIS [None]
  - DENTAL CARIES [None]
  - DENTAL FISTULA [None]
  - DIVERTICULUM INTESTINAL [None]
  - DYSLIPIDAEMIA [None]
  - DYSPNOEA [None]
  - EXOSTOSIS [None]
  - FLUSHING [None]
  - HAEMORRHOIDS [None]
  - HYPERKERATOSIS [None]
  - HYPERMETROPIA [None]
  - HYPOTHYROIDISM [None]
  - INJURY [None]
  - INTERVERTEBRAL DISC DEGENERATION [None]
  - INTERVERTEBRAL DISC PROTRUSION [None]
  - INTERVERTEBRAL DISC SPACE NARROWING [None]
  - JOINT EFFUSION [None]
  - LOSS OF CONSCIOUSNESS [None]
  - LUMBAR SPINAL STENOSIS [None]
  - MICROVASCULAR ANGINA [None]
  - MYOCARDIAL INFARCTION [None]
  - NECK PAIN [None]
  - OEDEMA PERIPHERAL [None]
  - OPEN WOUND [None]
  - ORTHOSTATIC HYPOTENSION [None]
  - OSTEOARTHRITIS [None]
  - OSTEOMYELITIS [None]
  - OSTEONECROSIS OF JAW [None]
  - PAIN [None]
  - PAIN IN JAW [None]
  - PALPITATIONS [None]
  - PERIODONTITIS [None]
  - PERIPHERAL NERVE LESION [None]
  - POLYNEUROPATHY [None]
  - PRESBYOPIA [None]
  - RHABDOMYOLYSIS [None]
  - SINUS TACHYCARDIA [None]
  - SINUSITIS [None]
  - SPINAL CORD COMPRESSION [None]
  - STEM CELL TRANSPLANT [None]
  - STENT PLACEMENT [None]
  - SUPERIOR VENA CAVAL OCCLUSION [None]
  - SYNCOPE [None]
  - TENDON RUPTURE [None]
  - TOOTH DISORDER [None]
  - TOOTH EXTRACTION [None]
  - TOOTH IMPACTED [None]
  - VASCULAR PUNCTURE SITE SEALING [None]
  - VENA CAVA THROMBOSIS [None]
  - VISUAL ACUITY REDUCED [None]
  - VITAMIN B12 DEFICIENCY [None]
